FAERS Safety Report 19621137 (Version 1)
Quarter: 2021Q3

REPORT INFORMATION
  Report Type: Spontaneous
  Country: US (occurrence: US)
  Receive Date: 20210728
  Receipt Date: 20210728
  Transmission Date: 20211014
  Serious: Yes (Death, Hospitalization)
  Sender: FDA-Public Use
  Company Number: None

PATIENT
  Age: 9 Year
  Sex: Male
  Weight: 32.1 kg

DRUGS (6)
  1. ONCASPAR [Suspect]
     Active Substance: PEGASPARGASE
     Dates: end: 20210625
  2. METHOTREXATE 60MG [Suspect]
     Active Substance: METHOTREXATE
     Dates: end: 20210527
  3. MERCAPTOPURINE 1800MG [Suspect]
     Active Substance: MERCAPTOPURINE
     Dates: end: 20210624
  4. CYCLOPHOSPHAMIDE 2140MG [Suspect]
     Active Substance: CYCLOPHOSPHAMIDE
     Dates: end: 20210611
  5. VINCRISTINE SULFATE 6.4 MG [Suspect]
     Active Substance: VINCRISTINE SULFATE
     Dates: end: 20210701
  6. CYTARABINE 1280MG [Suspect]
     Active Substance: CYTARABINE
     Dates: end: 20210621

REACTIONS (8)
  - Pancytopenia [None]
  - Infection [None]
  - Colitis [None]
  - Haemorrhagic cerebral infarction [None]
  - Tachycardia [None]
  - Confusional state [None]
  - Subdural haemorrhage [None]
  - Visual acuity reduced [None]

NARRATIVE: CASE EVENT DATE: 20210708
